FAERS Safety Report 13269620 (Version 1)
Quarter: 2017Q1

REPORT INFORMATION
  Report Type: Spontaneous
  Country: US (occurrence: US)
  Receive Date: 20170224
  Receipt Date: 20170224
  Transmission Date: 20170428
  Serious: Yes (Hospitalization)
  Sender: FDA-Public Use
  Company Number: US-ELI_LILLY_AND_COMPANY-US201702008489

PATIENT
  Age: 69 Year
  Sex: Female

DRUGS (2)
  1. GLUCAGON. [Suspect]
     Active Substance: GLUCAGON
     Indication: TYPE 1 DIABETES MELLITUS
     Dosage: OFF AND ON
     Route: 065
     Dates: start: 1973
  2. HUMALOG [Suspect]
     Active Substance: INSULIN LISPRO
     Indication: PRODUCT USED FOR UNKNOWN INDICATION
     Dosage: UNK, UNKNOWN
     Route: 065

REACTIONS (4)
  - Headache [Unknown]
  - Seizure [Unknown]
  - Blood glucose decreased [Unknown]
  - Drug ineffective [Unknown]

NARRATIVE: CASE EVENT DATE: 201611
